FAERS Safety Report 20653509 (Version 4)
Quarter: 2023Q1

REPORT INFORMATION
  Report Type: Spontaneous
  Country: US (occurrence: US)
  Receive Date: 20220330
  Receipt Date: 20230127
  Transmission Date: 20230417
  Serious: No
  Sender: FDA-Public Use
  Company Number: US-SA-SAC20220324001138

PATIENT
  Age: 77 Year
  Sex: Female

DRUGS (3)
  1. DUPIXENT [Suspect]
     Active Substance: DUPILUMAB
     Indication: Dermatitis atopic
     Dosage: 600 MG, QD
     Route: 058
     Dates: start: 202202, end: 202202
  2. DUPIXENT [Suspect]
     Active Substance: DUPILUMAB
     Dosage: 300 MG OTHER
     Route: 058
     Dates: start: 20220301
  3. CELECOXIB [Concomitant]
     Active Substance: CELECOXIB
     Dosage: 100MG 2 TIMES A DAY AND THEN AS NEEDED
     Route: 048

REACTIONS (5)
  - Dermatitis [Unknown]
  - Pruritus [Unknown]
  - Pelvic pain [Unknown]
  - Back pain [Unknown]
  - Product use issue [Unknown]

NARRATIVE: CASE EVENT DATE: 20220201
